FAERS Safety Report 4912029-5 (Version None)
Quarter: 2006Q1

REPORT INFORMATION
  Report Type: 
  Country: None (occurrence: None)
  Receive Date: 20060213
  Receipt Date: 20060130
  Transmission Date: 20060701
  Serious: Yes (Hospitalization)
  Sender: FDA-Public Use
  Company Number: RENA-11568

PATIENT
  Age: 59 Year
  Sex: Female

DRUGS (22)
  1. PHOSBLOCK - 250 MG TABLET [Suspect]
     Indication: HYPERPHOSPHATAEMIA
     Dosage: 0.5 G TID PO
     Route: 048
     Dates: start: 20040630
  2. CALCIUM CARBONATE [Concomitant]
  3. SENNOSIDE [Concomitant]
  4. DOXAZOSIN [Concomitant]
  5. AMLODIPINE BESYLATE [Concomitant]
  6. THEOPHYLLINE [Concomitant]
  7. TROXIPIDE [Concomitant]
  8. BERAPROST SODIUM [Concomitant]
  9. MECOBALAMIN [Concomitant]
  10. LORMETAZEPAM [Concomitant]
  11. NITRAZEPAM [Concomitant]
  12. METILDIGOXIN [Concomitant]
  13. ISOSORBIDE MONONITRATE [Concomitant]
  14. PRANLUKAST HYDRATE [Concomitant]
  15. CILOSTAZOL [Concomitant]
  16. SUPLATAST TOSILATE [Concomitant]
  17. ASPIRIN [Concomitant]
  18. AMEZINIUM METHYLSULFATE [Concomitant]
  19. EPINEPHRINE [Concomitant]
  20. CLARITHROMYCIN [Concomitant]
  21. DEXTROMETHORPHAN HYDROBROMIDE [Concomitant]
  22. INSULIN [Concomitant]

REACTIONS (3)
  - DYSPNOEA [None]
  - FLUID RETENTION [None]
  - WEIGHT INCREASED [None]
